FAERS Safety Report 20789825 (Version 3)
Quarter: 2022Q2

REPORT INFORMATION
  Report Type: Spontaneous
  Country: UY (occurrence: UY)
  Receive Date: 20220505
  Receipt Date: 20220620
  Transmission Date: 20220721
  Serious: No
  Sender: FDA-Public Use
  Company Number: UY-PFIZER INC-202200611001

PATIENT
  Age: 9 Year
  Sex: Female

DRUGS (1)
  1. GENOTROPIN [Suspect]
     Active Substance: SOMATROPIN
     Indication: Short stature
     Dosage: 0.6 TO 1MG, 7 TIMES PER WEEK
     Dates: start: 20211127

REACTIONS (4)
  - Poor quality device used [Unknown]
  - Device malfunction [Unknown]
  - Device difficult to use [Unknown]
  - Device use issue [Unknown]
